FAERS Safety Report 5426206-0 (Version None)
Quarter: 2007Q3

REPORT INFORMATION
  Report Type: 
  Country: None (occurrence: None)
  Receive Date: 20070827
  Receipt Date: 20070815
  Transmission Date: 20080115
  Serious: Yes (Other)
  Sender: FDA-Public Use
  Company Number: B0484539A

PATIENT
  Age: 64 Year
  Sex: Female

DRUGS (1)
  1. ZYBAN [Suspect]
     Route: 065
     Dates: start: 20070101, end: 20070801

REACTIONS (1)
  - VISUAL ACUITY REDUCED [None]
